FAERS Safety Report 6169444-4 (Version None)
Quarter: 2009Q2

REPORT INFORMATION
  Report Type: 
  Country: None (occurrence: None)
  Receive Date: 20090428
  Receipt Date: 20090416
  Transmission Date: 20091009
  Serious: Yes (Other)
  Sender: FDA-Public Use
  Company Number: PHHY2009NZ13350

PATIENT
  Sex: Male

DRUGS (3)
  1. CLOZARIL [Suspect]
     Indication: SCHIZOPHRENIA
     Dosage: UNK
     Dates: start: 20080331
  2. CLOZARIL [Suspect]
     Dosage: UNK
     Dates: start: 20080331
  3. CITALOPRAM [Concomitant]
     Dosage: 20 MG

REACTIONS (8)
  - BACK PAIN [None]
  - C-REACTIVE PROTEIN INCREASED [None]
  - CHEST PAIN [None]
  - PAIN IN EXTREMITY [None]
  - PYREXIA [None]
  - RASH MACULAR [None]
  - TACHYCARDIA [None]
  - TONSILLAR HYPERTROPHY [None]
